FAERS Safety Report 22388404 (Version 1)
Quarter: 2023Q2

REPORT INFORMATION
  Report Type: Spontaneous
  Country: US (occurrence: None)
  Receive Date: 20230529
  Receipt Date: 20230529
  Transmission Date: 20230722
  Serious: Yes (Disabling)
  Sender: FDA-Public Use
  Company Number: None

PATIENT
  Age: 52 Year
  Sex: Female
  Weight: 76.5 kg

DRUGS (19)
  1. AUVELITY [Suspect]
     Active Substance: BUPROPION HYDROCHLORIDE\DEXTROMETHORPHAN HYDROBROMIDE
     Indication: Major depression
     Dosage: OTHER QUANTITY : 2 TABLET(S);?
     Route: 048
     Dates: start: 20230302, end: 20230528
  2. ZOLPIDEM [Concomitant]
     Active Substance: ZOLPIDEM TARTRATE
  3. LIONESEL [Concomitant]
  4. LEVOMILNACIPRAN [Concomitant]
     Active Substance: LEVOMILNACIPRAN
  5. GABAPENTIN [Concomitant]
     Active Substance: GABAPENTIN
  6. CLONAZEPAM [Concomitant]
     Active Substance: CLONAZEPAM
  7. LAMOTRIGINE [Concomitant]
     Active Substance: LAMOTRIGINE
  8. DILTIAZEM [Concomitant]
     Active Substance: DILTIAZEM
  9. EPTINEZUMAB-JIMR [Concomitant]
  10. LISDEXAMFETAMINE [Concomitant]
     Active Substance: LISDEXAMFETAMINE
  11. DICLOFENAC POTASSIUM [Concomitant]
     Active Substance: DICLOFENAC POTASSIUM
  12. RIZATRIPTAN [Concomitant]
     Active Substance: RIZATRIPTAN
  13. UBROGEPANT [Concomitant]
     Active Substance: UBROGEPANT
  14. ONDANSETRON [Concomitant]
     Active Substance: ONDANSETRON
  15. LIDOCAINE [Concomitant]
     Active Substance: LIDOCAINE
  16. ACETAMINOPHEN [Concomitant]
     Active Substance: ACETAMINOPHEN
  17. VITAMINS [Concomitant]
     Active Substance: VITAMINS
  18. OMEGA-3 SUPPLEMENT [Concomitant]
  19. CALCIUM WITH VIT. D SUPPLEMENT [Concomitant]

REACTIONS (24)
  - Dizziness [None]
  - Balance disorder [None]
  - Vertigo [None]
  - Vision blurred [None]
  - Vertigo [None]
  - Vision blurred [None]
  - Nausea [None]
  - Migraine [None]
  - Thinking abnormal [None]
  - Memory impairment [None]
  - Confusional state [None]
  - Speech disorder [None]
  - Dissociation [None]
  - Impaired driving ability [None]
  - Hyperarousal [None]
  - Photophobia [None]
  - Fatigue [None]
  - Tachyphrenia [None]
  - Abnormal dreams [None]
  - Anger [None]
  - Disturbance in attention [None]
  - Headache [None]
  - Feeling abnormal [None]
  - Hypersensitivity [None]

NARRATIVE: CASE EVENT DATE: 20230308
